FAERS Safety Report 10177597 (Version 1)
Quarter: 2014Q2

REPORT INFORMATION
  Report Type: Spontaneous
  Country: CN (occurrence: CN)
  Receive Date: 20140516
  Receipt Date: 20140516
  Transmission Date: 20141212
  Serious: Yes (Hospitalization)
  Sender: FDA-Public Use
  Company Number: PHHY2014CN059645

PATIENT
  Sex: Female
  Weight: 60 kg

DRUGS (2)
  1. FLUVASTATIN [Suspect]
     Indication: LIPIDS ABNORMAL
     Dosage: 80 MG, BID
     Route: 048
     Dates: start: 20130702, end: 20130723
  2. FLUVASTATIN [Suspect]
     Indication: DIABETES MELLITUS

REACTIONS (2)
  - Rhabdomyolysis [Not Recovered/Not Resolved]
  - Asthenia [Unknown]
